FAERS Safety Report 17608532 (Version 1)
Quarter: 2020Q1

REPORT INFORMATION
  Report Type: Spontaneous
  Country: US (occurrence: US)
  Receive Date: 20200331
  Receipt Date: 20200331
  Transmission Date: 20200409
  Serious: Yes (Other)
  Sender: FDA-Public Use
  Company Number: US-AUROBINDO-AUR-APL-2020-015897

PATIENT
  Age: 22 Year
  Sex: Female

DRUGS (1)
  1. ROPIVACAINE HYDROCHLORIDE INJECTION USP 0.2% [Suspect]
     Active Substance: ROPIVACAINE HYDROCHLORIDE
     Indication: PRODUCT USED FOR UNKNOWN INDICATION
     Dosage: 5 MILLILITER, EVERY HOUR
     Route: 065

REACTIONS (2)
  - Horner^s syndrome [Unknown]
  - Maternal exposure during pregnancy [Unknown]
